FAERS Safety Report 7122971-5 (Version None)
Quarter: 2010Q4

REPORT INFORMATION
  Report Type: 
  Country: None (occurrence: None)
  Receive Date: 20101124
  Receipt Date: 20101027
  Transmission Date: 20110411
  Serious: Yes (Other)
  Sender: FDA-Public Use
  Company Number: US-AMGEN-KDL417483

PATIENT

DRUGS (7)
  1. NPLATE [Suspect]
     Indication: IDIOPATHIC THROMBOCYTOPENIC PURPURA
     Dosage: 5 A?G/KG, QWK
     Dates: start: 20100503, end: 20100728
  2. NPLATE [Suspect]
     Dates: start: 20100503, end: 20100728
  3. ATORVASTATIN CALCIUM [Concomitant]
     Dosage: UNK UNK, UNK
  4. UNSPECIFIED ALLERGY MEDICATION [Concomitant]
     Dosage: UNK UNK, UNK
  5. VITAMINS [Concomitant]
     Dosage: UNK UNK, UNK
  6. UNSPECIFIED MEDICATION [Concomitant]
     Dosage: UNK UNK, UNK
  7. ANTIHYPERTENSIVE MEDICATION NOS [Concomitant]
     Dosage: UNK UNK, UNK

REACTIONS (4)
  - ABDOMINAL PAIN [None]
  - BACK PAIN [None]
  - DRUG INEFFECTIVE [None]
  - NON-HODGKIN'S LYMPHOMA [None]
